FAERS Safety Report 8125103-X (Version None)
Quarter: 2012Q1

REPORT INFORMATION
  Report Type: 
  Country: None (occurrence: None)
  Receive Date: 20120130
  Receipt Date: 20120112
  Transmission Date: 20120608
  Serious: Yes (Other)
  Sender: FDA-Public Use
  Company Number: OMX-2012-00001

PATIENT
  Age: 51 Year
  Sex: Male

DRUGS (6)
  1. EVITHROM [Suspect]
  2. SURGIFLO [Concomitant]
  3. EVITHROM [Suspect]
     Indication: PRODUCT USED FOR UNKNOWN INDICATION
     Dates: start: 20101115, end: 20101115
  4. EVITHROM [Suspect]
     Indication: PRODUCT USED FOR UNKNOWN INDICATION
     Dates: start: 20101220, end: 20101220
  5. EVITHROM [Suspect]
     Indication: PRODUCT USED FOR UNKNOWN INDICATION
     Dates: start: 20100217, end: 20100217
  6. EVITHROM [Suspect]

REACTIONS (2)
  - HEPATITIS C [None]
  - TRANSMISSION OF AN INFECTIOUS AGENT VIA A MEDICINAL PRODUCT [None]
